FAERS Safety Report 11456862 (Version 2)
Quarter: 2015Q3

REPORT INFORMATION
  Report Type: Spontaneous
  Country: US (occurrence: US)
  Receive Date: 20150904
  Receipt Date: 20150914
  Transmission Date: 20151125
  Serious: Yes (Hospitalization, Other)
  Sender: FDA-Public Use
  Company Number: US-DRREDDYS-USA/USA/15/0050485

PATIENT
  Age: 27 Year
  Sex: Male

DRUGS (6)
  1. VALPROATE [Suspect]
     Active Substance: VALPROIC ACID
     Indication: MOOD ALTERED
     Route: 065
  2. LURASIDONE [Suspect]
     Active Substance: LURASIDONE
     Indication: PSYCHOTIC DISORDER
     Route: 065
  3. ZIPRASIDONE. [Suspect]
     Active Substance: ZIPRASIDONE
     Indication: PSYCHOTIC DISORDER
     Route: 065
  4. FLUOXETINE [Suspect]
     Active Substance: FLUOXETINE\FLUOXETINE HYDROCHLORIDE
     Indication: DEPRESSION
     Route: 065
  5. OLANZAPINE ODT 15 MG [Suspect]
     Active Substance: OLANZAPINE
     Indication: PSYCHOTIC DISORDER
     Route: 065
  6. FLUPHENAZINE [Concomitant]
     Active Substance: FLUPHENAZINE
     Indication: PSYCHOTIC DISORDER
     Route: 065

REACTIONS (10)
  - Euphoric mood [Recovered/Resolved]
  - Hallucination, auditory [Recovered/Resolved]
  - Sleep disorder [Recovered/Resolved]
  - Grandiosity [Recovered/Resolved]
  - Restlessness [Recovered/Resolved]
  - Weight increased [Unknown]
  - Thinking abnormal [Recovered/Resolved]
  - Neutropenia [Not Recovered/Not Resolved]
  - White blood cell count decreased [Not Recovered/Not Resolved]
  - Psychotic disorder [Recovered/Resolved]
